FAERS Safety Report 7381829-7 (Version None)
Quarter: 2011Q1

REPORT INFORMATION
  Report Type: 
  Country: None (occurrence: None)
  Receive Date: 20110329
  Receipt Date: 20110322
  Transmission Date: 20110831
  Serious: Yes (Hospitalization)
  Sender: FDA-Public Use
  Company Number: TR-ABBOTT-11P-161-0713632-00

PATIENT
  Age: 70 Year
  Sex: Female
  Weight: 90 kg

DRUGS (1)
  1. TARKA [Suspect]
     Indication: HYPERTENSION
     Dosage: DAILY DOSE: 1- 240/4 MG
     Dates: start: 20110312, end: 20110315

REACTIONS (2)
  - CARDIAC ARREST [None]
  - EJECTION FRACTION DECREASED [None]
